FAERS Safety Report 8594056-2 (Version None)
Quarter: 2012Q3

REPORT INFORMATION
  Report Type: 
  Country: None (occurrence: None)
  Receive Date: 20120814
  Receipt Date: 20120808
  Transmission Date: 20120928
  Serious: Yes (Hospitalization)
  Sender: FDA-Public Use
  Company Number: PHHY2012US068537

PATIENT
  Age: 33 Year
  Sex: Male

DRUGS (1)
  1. NAPROXEN [Suspect]
     Indication: MIGRAINE

REACTIONS (8)
  - ELECTROCARDIOGRAM ST SEGMENT DEPRESSION [None]
  - MYOCARDIAL INFARCTION [None]
  - HYPOTENSION [None]
  - RASH MACULO-PAPULAR [None]
  - ANGINA PECTORIS [None]
  - RASH PRURITIC [None]
  - KOUNIS SYNDROME [None]
  - DIZZINESS [None]
